FAERS Safety Report 7731783-0 (Version None)
Quarter: 2011Q3

REPORT INFORMATION
  Report Type: 
  Country: None (occurrence: None)
  Receive Date: 20110906
  Receipt Date: 20110831
  Transmission Date: 20111222
  Serious: Yes (Other)
  Sender: FDA-Public Use
  Company Number: PHHY2011DE75939

PATIENT
  Sex: Female

DRUGS (6)
  1. CORTICOSTEROIDS [Concomitant]
     Dosage: 15 MG, QD
  2. CORTICOSTEROIDS [Concomitant]
     Dosage: 5 MG, QD
  3. OMEPRAZOLE [Concomitant]
     Indication: GASTROOESOPHAGEAL REFLUX DISEASE
     Dosage: 20 MG,
     Route: 048
  4. ZOLEDRONOC ACID [Suspect]
     Indication: OSTEOPOROSIS
     Dosage: 5 MG, UNK
     Route: 042
     Dates: start: 20110407
  5. MESALAMINE [Concomitant]
     Indication: DIVERTICULITIS
     Dosage: 500 MG, BID
     Route: 048
  6. ACETAMINOPHEN [Concomitant]
     Dosage: 500 MG,

REACTIONS (6)
  - RHEUMATOID ARTHRITIS [None]
  - MUSCULOSKELETAL PAIN [None]
  - POLYMYALGIA RHEUMATICA [None]
  - NECK PAIN [None]
  - MUSCULOSKELETAL STIFFNESS [None]
  - ARTHRALGIA [None]
